FAERS Safety Report 5093950-7 (Version None)
Quarter: 2006Q3

REPORT INFORMATION
  Report Type: 
  Country: None (occurrence: None)
  Receive Date: 20060831
  Receipt Date: 20060822
  Transmission Date: 20061208
  Serious: Yes (Other)
  Sender: FDA-Public Use
  Company Number: 2006UW16684

PATIENT
  Age: 63 Year
  Sex: Male

DRUGS (2)
  1. RHINOCORT AQUA [Suspect]
     Dosage: 2 PUFFS
     Route: 045
     Dates: start: 20060101
  2. PULMICORT [Suspect]
     Dosage: 2 SPRAYS
     Route: 055
     Dates: start: 20060101

REACTIONS (2)
  - DEPRESSION [None]
  - PANIC REACTION [None]
